FAERS Safety Report 24704568 (Version 1)
Quarter: 2024Q4

REPORT INFORMATION
  Report Type: Spontaneous
  Country: IL (occurrence: IL)
  Receive Date: 20241206
  Receipt Date: 20241206
  Transmission Date: 20250115
  Serious: Yes (Other)
  Sender: TEVA
  Company Number: IL-TEVA-VS-3271797

PATIENT

DRUGS (1)
  1. AMOXICILLIN\CLAVULANATE POTASSIUM [Suspect]
     Active Substance: AMOXICILLIN\CLAVULANATE POTASSIUM
     Indication: Tooth infection
     Route: 048
     Dates: start: 202411

REACTIONS (4)
  - Cyanosis [Unknown]
  - Erythema [Unknown]
  - Asthenia [Unknown]
  - Peripheral swelling [Unknown]
